FAERS Safety Report 5704858-5 (Version None)
Quarter: 2008Q2

REPORT INFORMATION
  Report Type: 
  Country: None (occurrence: None)
  Receive Date: 20080414
  Receipt Date: 20080402
  Transmission Date: 20081010
  Serious: Yes (Death)
  Sender: FDA-Public Use
  Company Number: US-PFIZER INC-2008029684

PATIENT
  Sex: Female

DRUGS (10)
  1. VFEND [Suspect]
     Dates: start: 20071011, end: 20080325
  2. FOLIC ACID [Concomitant]
  3. CALCIUM CHLORIDE [Concomitant]
  4. ALL OTHER THERAPEUTIC PRODUCTS [Concomitant]
  5. HYDROXYUREA [Concomitant]
  6. PREDNISOLONE [Concomitant]
  7. ACYCLOVIR [Concomitant]
  8. PROZAC [Concomitant]
  9. LEVAQUIN [Concomitant]
  10. AUGMENTIN '125' [Concomitant]

REACTIONS (2)
  - CONDITION AGGRAVATED [None]
  - LEUKAEMIA [None]
